FAERS Safety Report 7122800-X (Version None)
Quarter: 2010Q4

REPORT INFORMATION
  Report Type: 
  Country: None (occurrence: None)
  Receive Date: 20101124
  Receipt Date: 20101117
  Transmission Date: 20110411
  Serious: Yes (Hospitalization)
  Sender: FDA-Public Use
  Company Number: US-ABBOTT-10P-163-0686490-00

PATIENT
  Sex: Male
  Weight: 77.18 kg

DRUGS (9)
  1. HUMIRA [Suspect]
     Indication: RHEUMATOID ARTHRITIS
     Dates: start: 20090101, end: 20101001
  2. GLYPIZIDE [Concomitant]
     Indication: DIABETES MELLITUS
  3. METOPROLOL SUCCINATE [Concomitant]
     Indication: HYPERTENSION
  4. OMEPRAZOLE [Concomitant]
     Indication: DYSPEPSIA
  5. ASPIRIN [Concomitant]
     Indication: CARDIOVASCULAR DISORDER
  6. FOLIC ACID [Concomitant]
     Indication: VITAMIN SUPPLEMENTATION
  7. METOCLOPRAMIDE [Concomitant]
     Indication: DYSPEPSIA
  8. ENALAPRIL MALEATE [Concomitant]
     Indication: HYPERTENSION
  9. ESTAZOLAM [Concomitant]
     Indication: INSOMNIA

REACTIONS (19)
  - ARTHRALGIA [None]
  - CYSTITIS [None]
  - DRY SKIN [None]
  - GASTRIC INFECTION [None]
  - HEPATIC INFECTION [None]
  - ILL-DEFINED DISORDER [None]
  - INTRACRANIAL HYPOTENSION [None]
  - JOINT SWELLING [None]
  - KIDNEY INFECTION [None]
  - LIMB INJURY [None]
  - LIVER DISORDER [None]
  - OSTEOPOROSIS [None]
  - PRURITUS [None]
  - RASH [None]
  - RHEUMATOID ARTHRITIS [None]
  - ROAD TRAFFIC ACCIDENT [None]
  - SPINAL CORD INJURY [None]
  - SPINAL FRACTURE [None]
  - ULCER [None]
